FAERS Safety Report 12109140 (Version 1)
Quarter: 2016Q1

REPORT INFORMATION
  Report Type: Spontaneous
  Country: US (occurrence: US)
  Receive Date: 20160224
  Receipt Date: 20160224
  Transmission Date: 20160526
  Serious: Yes (Other)
  Sender: FDA-Public Use
  Company Number: US-ASTRAZENECA-2016SE17650

PATIENT
  Age: 89 Year
  Sex: Female

DRUGS (1)
  1. NEXIUM [Suspect]
     Active Substance: ESOMEPRAZOLE MAGNESIUM
     Route: 048
     Dates: start: 1996

REACTIONS (2)
  - Hypertension [Unknown]
  - Dyspepsia [Unknown]

NARRATIVE: CASE EVENT DATE: 2015
